FAERS Safety Report 5629881-0 (Version None)
Quarter: 2008Q1

REPORT INFORMATION
  Report Type: 
  Country: None (occurrence: None)
  Receive Date: 20080218
  Receipt Date: 20080207
  Transmission Date: 20080703
  Serious: Yes (Death, Other)
  Sender: FDA-Public Use
  Company Number: PHBS2008DE01940

PATIENT
  Age: 30 Year
  Sex: Male

DRUGS (6)
  1. CYCLOSPORINE [Suspect]
     Indication: LIVER TRANSPLANT
     Route: 065
  2. BASILIXIMAB [Suspect]
     Indication: LIVER TRANSPLANT
     Dosage: 20 MG ON DAY 0 AND DAY 4
     Route: 042
  3. AZATHIOPRINE [Suspect]
     Indication: LIVER TRANSPLANT
     Dosage: 150 MG/DAY
  4. AZATHIOPRINE [Suspect]
     Dosage: 100 MG/DAY
  5. AZATHIOPRINE [Suspect]
     Dosage: 75 MG/DAY
  6. CORTICOSTEROIDS [Concomitant]
     Indication: LIVER TRANSPLANT

REACTIONS (16)
  - ACUTE RESPIRATORY FAILURE [None]
  - CANDIDA PNEUMONIA [None]
  - CEREBRAL HAEMORRHAGE [None]
  - CYTOMEGALOVIRUS INFECTION [None]
  - ENTEROCOCCAL INFECTION [None]
  - GRAFT VERSUS HOST DISEASE [None]
  - HAEMODIALYSIS [None]
  - INTESTINAL HAEMORRHAGE [None]
  - MECHANICAL VENTILATION [None]
  - PLATELET COUNT DECREASED [None]
  - PNEUMONIA BACTERIAL [None]
  - PULMONARY HAEMORRHAGE [None]
  - PYREXIA [None]
  - RASH [None]
  - RENAL FAILURE ACUTE [None]
  - TOXIC EPIDERMAL NECROLYSIS [None]
